FAERS Safety Report 21284491 (Version 1)
Quarter: 2022Q3

REPORT INFORMATION
  Report Type: Spontaneous
  Country: US (occurrence: US)
  Receive Date: 20220902
  Receipt Date: 20220902
  Transmission Date: 20221027
  Serious: Yes (Death, Other)
  Sender: FDA-Public Use
  Company Number: US-SA-SAC20220831000903

PATIENT
  Age: 71 Year
  Sex: Male
  Weight: 56.2 kg

DRUGS (2)
  1. COPIKTRA [Suspect]
     Active Substance: DUVELISIB
     Indication: Metastatic squamous cell carcinoma
     Dosage: UNK
  2. DOCETAXEL [Suspect]
     Active Substance: DOCETAXEL
     Indication: Metastatic squamous cell carcinoma
     Dosage: UNK

REACTIONS (8)
  - Weight decreased [Fatal]
  - Pneumonia aspiration [Fatal]
  - Dysphagia [Fatal]
  - Mucosal inflammation [Fatal]
  - Cardiac arrest [Fatal]
  - Gastrointestinal haemorrhage [Fatal]
  - Viraemia [Fatal]
  - Enterocolitis [Fatal]

NARRATIVE: CASE EVENT DATE: 20220108
